FAERS Safety Report 9110900 (Version 1)
Quarter: 2013Q1

REPORT INFORMATION
  Report Type: Spontaneous
  Country: US (occurrence: US)
  Receive Date: 20130219
  Receipt Date: 20130219
  Transmission Date: 20140127
  Serious: No
  Sender: FDA-Public Use
  Company Number: US-BRISTOL-MYERS SQUIBB COMPANY-16423451

PATIENT
  Age: 39 Year
  Sex: Female

DRUGS (3)
  1. ORENCIA [Suspect]
     Indication: RHEUMATOID ARTHRITIS
     Dosage: LAST INFUSION WAS ON 08FEB2012.DOSE WAS 4 VIALS DURATION: 1
     Route: 042
     Dates: start: 20120111
  2. TYLENOL [Concomitant]
     Route: 048
  3. CLARITIN [Concomitant]
     Route: 048

REACTIONS (4)
  - Headache [Unknown]
  - Nausea [Unknown]
  - Irritability [Unknown]
  - Pruritus [Unknown]
